FAERS Safety Report 15928845 (Version 1)
Quarter: 2019Q1

REPORT INFORMATION
  Report Type: Spontaneous
  Country: CN (occurrence: CN)
  Receive Date: 20190206
  Receipt Date: 20190206
  Transmission Date: 20190417
  Serious: Yes (Other)
  Sender: FDA-Public Use
  Company Number: CN-MYLANLABS-2019M1008489

PATIENT
  Age: 52 Year
  Sex: Male

DRUGS (5)
  1. IDARUBICIN [Suspect]
     Active Substance: IDARUBICIN
     Indication: PRECURSOR B-LYMPHOBLASTIC LYMPHOMA
     Route: 065
  2. ASPARAGINASE [Suspect]
     Active Substance: ASPARAGINASE
     Indication: PRECURSOR B-LYMPHOBLASTIC LYMPHOMA
     Route: 065
  3. CYCLOPHOSPHAMIDE. [Suspect]
     Active Substance: CYCLOPHOSPHAMIDE
     Indication: PRECURSOR B-LYMPHOBLASTIC LYMPHOMA
     Route: 065
  4. VINDESINE [Suspect]
     Active Substance: VINDESINE
     Indication: PRECURSOR B-LYMPHOBLASTIC LYMPHOMA
     Route: 065
  5. DEXAMETHASONE. [Suspect]
     Active Substance: DEXAMETHASONE
     Indication: PRECURSOR B-LYMPHOBLASTIC LYMPHOMA
     Route: 065

REACTIONS (5)
  - Febrile neutropenia [Unknown]
  - Hyperglycaemia [Unknown]
  - Hepatotoxicity [Unknown]
  - Lung infection [Unknown]
  - Sepsis [Unknown]
